FAERS Safety Report 18410067 (Version 1)
Quarter: 2020Q4

REPORT INFORMATION
  Report Type: Spontaneous
  Country: US (occurrence: US)
  Receive Date: 20201021
  Receipt Date: 20201021
  Transmission Date: 20210114
  Serious: Yes (Life-Threatening, Hospitalization)
  Sender: FDA-Public Use
  Company Number: None

PATIENT
  Age: 65 Year
  Sex: Female
  Weight: 54 kg

DRUGS (7)
  1. ZINC. [Concomitant]
     Active Substance: ZINC
  2. ASPIRIN. [Concomitant]
     Active Substance: ASPIRIN
  3. RETIN-A MICRO [Concomitant]
     Active Substance: TRETINOIN
  4. MAGNESIUM [Concomitant]
     Active Substance: MAGNESIUM
  5. GLATIRAMER ACETATE 40MG/ML [Suspect]
     Active Substance: GLATIRAMER ACETATE
     Indication: RELAPSING-REMITTING MULTIPLE SCLEROSIS
     Dosage: ??          QUANTITY:1 INJECTION(S);OTHER FREQUENCY:3X PER WEEK;OTHER ROUTE:SUBCUTANEOUSLY INJECTED?
     Route: 058
     Dates: start: 20200930, end: 20201005
  6. DAILY WOMEN VITAMIN [Concomitant]
  7. CALCIUM [Concomitant]
     Active Substance: CALCIUM

REACTIONS (5)
  - Nasopharyngitis [None]
  - Heart rate increased [None]
  - Tremor [None]
  - Nausea [None]
  - Body temperature increased [None]

NARRATIVE: CASE EVENT DATE: 20201005
